FAERS Safety Report 26132945 (Version 1)
Quarter: 2025Q4

REPORT INFORMATION
  Report Type: Spontaneous
  Country: EU (occurrence: EU)
  Receive Date: 20251209
  Receipt Date: 20251209
  Transmission Date: 20260118
  Serious: Yes (Other)
  Sender: CELLTRION
  Company Number: None

PATIENT

DRUGS (5)
  1. RITUXIMAB [Suspect]
     Active Substance: RITUXIMAB
     Indication: Myasthenia gravis
     Dosage: 500 MILLIGRAM, EVERY 6 MONTHS
     Route: 042
     Dates: start: 20250325
  2. PROTOPIC [Concomitant]
     Active Substance: TACROLIMUS
     Dosage: EVERY 0.5 DAY
     Dates: start: 20250212
  3. OCTAGAM IMMUNE GLOBULIN (HUMAN) [Concomitant]
     Active Substance: HUMAN IMMUNOGLOBULIN G
     Dosage: 200 MILLILITER, Q4WEEKS
     Dates: start: 20210916
  4. MESTINON [Concomitant]
     Active Substance: PYRIDOSTIGMINE BROMIDE
     Dosage: 10 MG 2-6 TABLETS 3-6 TIMES A DAY
     Dates: start: 20200626
  5. MESTINON [Concomitant]
     Active Substance: PYRIDOSTIGMINE BROMIDE
     Dosage: 60 MG 1 TABLET 3-6 TIMES A DAY
     Dates: start: 20200626

REACTIONS (5)
  - Hypoaesthesia oral [Recovered/Resolved]
  - Musculoskeletal stiffness [Recovered/Resolved]
  - Arthralgia [Recovered/Resolved]
  - Urticaria [Recovered/Resolved]
  - Intentional product use issue [Unknown]

NARRATIVE: CASE EVENT DATE: 20250403
